FAERS Safety Report 24564837 (Version 1)
Quarter: 2024Q4

REPORT INFORMATION
  Report Type: Spontaneous
  Country: CN (occurrence: CN)
  Receive Date: 20241030
  Receipt Date: 20241030
  Transmission Date: 20250114
  Serious: Yes (Other)
  Sender: PAREXEL
  Company Number: CN-SHANGHAI JUNSHI BIOSCIENCES CO., LTD.-CN2024011800

PATIENT

DRUGS (16)
  1. TORIPALIMAB [Suspect]
     Active Substance: TORIPALIMAB
     Indication: Malignant melanoma
     Dosage: ADMINISTED FOR 3 CYCLES
     Route: 041
  2. TORIPALIMAB [Suspect]
     Active Substance: TORIPALIMAB
     Dosage: 240 MG (D0)
     Route: 041
     Dates: start: 20240822, end: 20240822
  3. DACARBAZINE [Suspect]
     Active Substance: DACARBAZINE
     Indication: Malignant melanoma
     Dosage: ADMINISTED FOR 3 CYCLES
     Route: 041
  4. DACARBAZINE [Suspect]
     Active Substance: DACARBAZINE
     Dosage: 340 MG (D1-D5), QD
     Route: 041
     Dates: start: 20240823, end: 20240827
  5. CISPLATIN [Suspect]
     Active Substance: CISPLATIN
     Indication: Malignant melanoma
     Dosage: ADMINISTED FOR 3 CYCLES
     Route: 041
  6. CISPLATIN [Suspect]
     Active Substance: CISPLATIN
     Dosage: 42.5 MG (D1-D3), QD
     Route: 041
     Dates: start: 20240823, end: 20240825
  7. BEVACIZUMAB [Suspect]
     Active Substance: BEVACIZUMAB
     Indication: Malignant melanoma
     Dosage: ADMINISTED FOR 3 CYCLES
     Route: 041
  8. BEVACIZUMAB [Suspect]
     Active Substance: BEVACIZUMAB
     Dosage: 990 MG (D0)
     Route: 041
     Dates: start: 20240822, end: 20240822
  9. SODIUM CHLORIDE [Concomitant]
     Active Substance: SODIUM CHLORIDE
     Indication: Medication dilution
     Dosage: ADMINISTED FOR 3 CYCLES
  10. SODIUM CHLORIDE [Concomitant]
     Active Substance: SODIUM CHLORIDE
     Dosage: 100 ML (D0)
     Route: 041
     Dates: start: 20240822, end: 20240822
  11. SODIUM CHLORIDE [Concomitant]
     Active Substance: SODIUM CHLORIDE
     Indication: Medication dilution
     Dosage: ADMINISTED FOR 3 CYCLES
  12. SODIUM CHLORIDE [Concomitant]
     Active Substance: SODIUM CHLORIDE
     Dosage: 250 ML (D0)
     Route: 041
     Dates: start: 20240822, end: 20240822
  13. SODIUM CHLORIDE [Concomitant]
     Active Substance: SODIUM CHLORIDE
     Indication: Medication dilution
     Dosage: ADMINISTED FOR 3 CYCLES
  14. SODIUM CHLORIDE [Concomitant]
     Active Substance: SODIUM CHLORIDE
     Dosage: 250 ML (D1-D3), QD
     Route: 041
     Dates: start: 20240823, end: 20240825
  15. DEXTROSE [Concomitant]
     Active Substance: DEXTROSE MONOHYDRATE
     Indication: Medication dilution
     Dosage: ADMINISTED FOR 3 CYCLES
  16. DEXTROSE [Concomitant]
     Active Substance: DEXTROSE MONOHYDRATE
     Dosage: 250 ML (D1-D5), QD
     Route: 041
     Dates: start: 20240823, end: 20240828

REACTIONS (6)
  - Lymphocyte count decreased [Recovering/Resolving]
  - White blood cell count decreased [Recovering/Resolving]
  - Red blood cell count decreased [Not Recovered/Not Resolved]
  - Neutrophil count decreased [Recovering/Resolving]
  - Haemoglobin decreased [Not Recovered/Not Resolved]
  - Platelet count decreased [Recovering/Resolving]

NARRATIVE: CASE EVENT DATE: 20240828
